FAERS Safety Report 4840992-X (Version None)
Quarter: 2005Q4

REPORT INFORMATION
  Report Type: 
  Country: None (occurrence: None)
  Receive Date: 20051130
  Receipt Date: 20050817
  Transmission Date: 20060501
  Serious: Yes (Other)
  Sender: FDA-Public Use
  Company Number: US-BRISTOL-MYERS SQUIBB COMPANY-13081559

PATIENT
  Sex: Female
  Weight: 48 kg

DRUGS (2)
  1. ABILIFY [Suspect]
     Indication: SCHIZOPHRENIA
  2. COGENTIN [Concomitant]

REACTIONS (4)
  - AMNESIA [None]
  - ANGIONEUROTIC OEDEMA [None]
  - DYSARTHRIA [None]
  - MUSCLE SPASMS [None]
